FAERS Safety Report 7280212-2 (Version None)
Quarter: 2011Q1

REPORT INFORMATION
  Report Type: 
  Country: None (occurrence: None)
  Receive Date: 20110208
  Receipt Date: 20110201
  Transmission Date: 20110831
  Serious: Yes (Death, Other)
  Sender: FDA-Public Use
  Company Number: ES-AMGEN-ESPSP2011004123

PATIENT
  Age: 65 Year
  Sex: Male

DRUGS (2)
  1. ENBREL [Suspect]
     Indication: RHEUMATOID ARTHRITIS
     Dosage: UNK
     Route: 065
     Dates: start: 20040101, end: 20080101
  2. PREDNISONE [Concomitant]
     Dosage: UNK
     Route: 048
     Dates: end: 20091201

REACTIONS (4)
  - HEPATIC CANCER METASTATIC [None]
  - HORMONE LEVEL ABNORMAL [None]
  - NEUROENDOCRINE TUMOUR [None]
  - HEPATIC LESION [None]
